FAERS Safety Report 8994456 (Version 1)
Quarter: 2012Q4

REPORT INFORMATION
  Report Type: Spontaneous
  Country: US (occurrence: None)
  Receive Date: 20121228
  Receipt Date: 20121228
  Transmission Date: 20130627
  Serious: Yes (Disabling)
  Sender: FDA-Public Use
  Company Number: None

PATIENT
  Sex: Female
  Weight: 68.04 kg

DRUGS (1)
  1. NEUTROGENA AGE DEFENSE ANTI OXIDANT DAILY MOISTURIZER SPF20 [Suspect]
     Indication: PROPHYLAXIS AGAINST SOLAR RADIATION
     Dosage: To Cover Daily Topical (060)
     Route: 061
     Dates: start: 201106, end: 20120623

REACTIONS (3)
  - Solar lentigo [None]
  - Application site telangiectasia [None]
  - Dry skin [None]
